FAERS Safety Report 7064842-9 (Version None)
Quarter: 2010Q4

REPORT INFORMATION
  Report Type: 
  Country: None (occurrence: None)
  Receive Date: 20101027
  Receipt Date: 19851015
  Transmission Date: 20110411
  Serious: Yes (Death)
  Sender: FDA-Public Use
  Company Number: DE-ROCHE-850312812003

PATIENT
  Age: 74 Year
  Sex: Male
  Weight: 60 kg

DRUGS (4)
  1. CEFTRIAXONE SODIUM [Suspect]
     Route: 042
     Dates: start: 19850927, end: 19851004
  2. HEPARIN [Concomitant]
     Indication: THROMBOSIS PROPHYLAXIS
     Route: 058
     Dates: start: 19850927, end: 19851003
  3. DIHYDROERGOTAMINE MESYLATE [Concomitant]
     Route: 065
  4. METRONIDAZOLE [Concomitant]
     Route: 042
     Dates: start: 19850927, end: 19851004

REACTIONS (2)
  - DEATH [None]
  - PROTHROMBIN TIME PROLONGED [None]
